FAERS Safety Report 4720995-6 (Version None)
Quarter: 2005Q3

REPORT INFORMATION
  Report Type: 
  Country: None (occurrence: None)
  Receive Date: 20050720
  Receipt Date: 20050707
  Transmission Date: 20060218
  Serious: Yes (Hospitalization, Other)
  Sender: FDA-Public Use
  Company Number: 2005065547

PATIENT
  Age: 75 Year
  Sex: Male
  Weight: 59 kg

DRUGS (10)
  1. UNASYN [Suspect]
     Indication: PNEUMONIA
     Dosage: 6 GRAM (2 IN 1 D), INTRAVENOUS
     Route: 042
     Dates: start: 20050418, end: 20050421
  2. LIPITOR [Concomitant]
  3. MARZULENE S (LEVOGLUTAMIDE, SODIUM GUALENATE) [Concomitant]
  4. HARNAL (TAMSULOSIN HYDROCHLORIDE) [Concomitant]
  5. UBRETID (DISTIGMINE BROMIDE) [Concomitant]
  6. PAXIL [Concomitant]
  7. TETRAMIDE (MIANSERIN HYDROCHLORIDE) [Concomitant]
  8. SILENCE (FLUNITRAZEPAM) [Concomitant]
  9. VEGETAMIN (CHLORPROMAZINE HYDROCHLORIDE, PHENOBARBITAL, PROMETHAZINE H [Concomitant]
  10. ATARA-P (HYDROXYZINE PAMOATE) [Concomitant]

REACTIONS (9)
  - BACTERIA BLOOD IDENTIFIED [None]
  - BACTERIA URINE IDENTIFIED [None]
  - BLOOD IMMUNOGLOBULIN G ABNORMAL [None]
  - BLOOD IMMUNOGLOBULIN M ABNORMAL [None]
  - CLOSTRIDIUM DIFFICILE TOXIN TEST POSITIVE [None]
  - ENTEROCOLITIS HAEMORRHAGIC [None]
  - GASTROINTESTINAL MOTILITY DISORDER [None]
  - INTESTINAL STENOSIS [None]
  - KLEBSIELLA INFECTION [None]
